FAERS Safety Report 14872562 (Version 1)
Quarter: 2018Q2

REPORT INFORMATION
  Report Type: Spontaneous
  Country: FR (occurrence: FR)
  Receive Date: 20180510
  Receipt Date: 20180510
  Transmission Date: 20180711
  Serious: Yes (Life-Threatening, Hospitalization)
  Sender: FDA-Public Use
  Company Number: FR-TEVA-2018-FR-891405

PATIENT
  Age: 43 Year
  Sex: Female

DRUGS (1)
  1. ZOPICLONE [Suspect]
     Active Substance: ZOPICLONE
     Dosage: 50 DOSAGE FORMS DAILY;
     Route: 048

REACTIONS (2)
  - Drug dependence [Recovering/Resolving]
  - Drug detoxification [Recovering/Resolving]
